FAERS Safety Report 19731955 (Version 2)
Quarter: 2021Q3

REPORT INFORMATION
  Report Type: Spontaneous
  Country: FR (occurrence: FR)
  Receive Date: 20210820
  Receipt Date: 20210825
  Transmission Date: 20211014
  Serious: Yes (Hospitalization, Other)
  Sender: FDA-Public Use
  Company Number: FR-009507513-2108FRA005039

PATIENT
  Sex: Female

DRUGS (2)
  1. ISENTRESS [Suspect]
     Active Substance: RALTEGRAVIR POTASSIUM
     Dosage: 600 MG TWICE PER DAY
     Route: 048
  2. ISENTRESS [Suspect]
     Active Substance: RALTEGRAVIR POTASSIUM
     Dosage: 100 MILLIGRAM
     Route: 048

REACTIONS (4)
  - Inappropriate schedule of product administration [Unknown]
  - Respiratory failure [Unknown]
  - Product prescribing issue [Unknown]
  - Intercepted product prescribing error [Unknown]
